FAERS Safety Report 5375753-9 (Version None)
Quarter: 2007Q2

REPORT INFORMATION
  Report Type: 
  Country: None (occurrence: None)
  Receive Date: 20070628
  Receipt Date: 20070619
  Transmission Date: 20071010
  Serious: Yes (Hospitalization)
  Sender: FDA-Public Use
  Company Number: 2007BI013195

PATIENT
  Age: 48 Year
  Sex: Female

DRUGS (1)
  1. AVONEX [Suspect]
     Indication: MULTIPLE SCLEROSIS
     Dosage: 30 UG; QW; IM
     Route: 030
     Dates: start: 20040822, end: 20070601

REACTIONS (5)
  - ANKLE FRACTURE [None]
  - ASTHENIA [None]
  - FALL [None]
  - MULTIPLE SCLEROSIS RELAPSE [None]
  - WRIST FRACTURE [None]
